FAERS Safety Report 17463673 (Version 4)
Quarter: 2022Q2

REPORT INFORMATION
  Report Type: Report from Study
  Country: JP (occurrence: JP)
  Receive Date: 20200226
  Receipt Date: 20220616
  Transmission Date: 20220721
  Serious: Yes (Hospitalization, Other)
  Sender: FDA-Public Use
  Company Number: JP-JNJFOC-20160115308

PATIENT
  Age: 60 Year
  Sex: Male

DRUGS (49)
  1. RILPIVIRINE [Suspect]
     Active Substance: RILPIVIRINE
     Indication: HIV infection
     Route: 048
     Dates: start: 20141205, end: 20180311
  2. RILPIVIRINE [Suspect]
     Active Substance: RILPIVIRINE
     Route: 048
     Dates: start: 20180319, end: 20181010
  3. TIVICAY [Suspect]
     Active Substance: DOLUTEGRAVIR SODIUM
     Indication: HIV infection
     Route: 048
     Dates: start: 20141205, end: 20210322
  4. PREDONINE [Suspect]
     Active Substance: PREDNISOLONE
     Indication: Interstitial lung disease
     Dosage: MORNING10MG, EVENING5MG
     Route: 065
     Dates: start: 20130401, end: 20150802
  5. PREDONINE [Suspect]
     Active Substance: PREDNISOLONE
     Indication: Interstitial lung disease
     Route: 065
     Dates: start: 20130401, end: 20150802
  6. PREDONINE [Suspect]
     Active Substance: PREDNISOLONE
     Indication: Interstitial lung disease
     Dosage: MORNING5MG, EVENING2.5MG
     Route: 065
     Dates: start: 20150803, end: 20210322
  7. DESCOVY [Concomitant]
     Active Substance: EMTRICITABINE\TENOFOVIR ALAFENAMIDE FUMARATE
     Indication: HIV infection
     Route: 048
     Dates: start: 20180312, end: 20180318
  8. DESCOVY [Concomitant]
     Active Substance: EMTRICITABINE\TENOFOVIR ALAFENAMIDE FUMARATE
     Route: 048
     Dates: start: 20181011, end: 20210322
  9. DOXIL INJECTION [Concomitant]
     Indication: Kaposi^s sarcoma
     Route: 042
     Dates: start: 20150428, end: 20150428
  10. DOXIL INJECTION [Concomitant]
     Route: 042
     Dates: start: 20150519, end: 20150519
  11. DOXIL INJECTION [Concomitant]
     Dosage: 4-12COURSE
     Route: 042
     Dates: start: 20160421, end: 20170207
  12. DOXORUBICIN HYDROCHLORIDE [Concomitant]
     Active Substance: DOXORUBICIN HYDROCHLORIDE
     Indication: Kaposi^s sarcoma
     Dosage: UNKNOWN
     Route: 042
     Dates: start: 20180619, end: 20180619
  13. DOXORUBICIN HYDROCHLORIDE [Concomitant]
     Active Substance: DOXORUBICIN HYDROCHLORIDE
     Indication: Kaposi^s sarcoma
     Dosage: UNKNOWN
     Route: 042
     Dates: start: 20180724, end: 20180724
  14. DOXORUBICIN HYDROCHLORIDE [Concomitant]
     Active Substance: DOXORUBICIN HYDROCHLORIDE
     Indication: Kaposi^s sarcoma
     Dosage: UNKNOWN
     Route: 042
     Dates: start: 20180904, end: 20180904
  15. LOPEMIN [Concomitant]
     Indication: Diarrhoea
     Dosage: P.R.N
     Route: 048
     Dates: start: 20150914, end: 20180401
  16. ACETAMINOPHEN\TRAMADOL [Concomitant]
     Active Substance: ACETAMINOPHEN\TRAMADOL
     Indication: Pain management
     Dosage: UNKNOWN
     Route: 048
     Dates: start: 20180907, end: 20181105
  17. SULFAMETHOXAZOLE\TRIMETHOPRIM [Concomitant]
     Active Substance: SULFAMETHOXAZOLE\TRIMETHOPRIM
     Indication: Antifungal prophylaxis
     Route: 048
     Dates: start: 20130401, end: 20210322
  18. ALFAROL [Concomitant]
     Active Substance: ALFACALCIDOL
     Indication: Osteoporosis
     Route: 048
     Dates: start: 20130401, end: 20170405
  19. CELECOXIB [Concomitant]
     Active Substance: CELECOXIB
     Indication: Prophylaxis
     Route: 048
     Dates: start: 20140327, end: 20180812
  20. FAMOTIDINE [Concomitant]
     Active Substance: FAMOTIDINE
     Indication: Prophylaxis
     Route: 048
     Dates: start: 20141205, end: 20181014
  21. ALENDRONATE [Concomitant]
     Active Substance: ALENDRONATE SODIUM
     Indication: Osteoporosis
     Route: 065
     Dates: start: 20150420, end: 20210322
  22. TORSEMIDE [Concomitant]
     Active Substance: TORSEMIDE
     Indication: Oedema peripheral
     Route: 048
     Dates: start: 20151207, end: 20161204
  23. TORSEMIDE [Concomitant]
     Active Substance: TORSEMIDE
     Indication: Diarrhoea
     Dosage: UNKNOWN
     Route: 048
     Dates: start: 20180216, end: 20181106
  24. XALATAN [Concomitant]
     Active Substance: LATANOPROST
     Indication: Glaucoma
     Route: 047
     Dates: start: 20150520, end: 20150610
  25. TIMOLOL [Concomitant]
     Active Substance: TIMOLOL
     Indication: Glaucoma
     Route: 047
     Dates: start: 20150520, end: 20150610
  26. RIPASUDIL HYDROCHLORIDE DIHYDRATE [Concomitant]
     Active Substance: RIPASUDIL HYDROCHLORIDE DIHYDRATE
     Indication: Glaucoma
     Route: 047
     Dates: start: 20150520, end: 20180209
  27. LATANOPROST\TIMOLOL MALEATE [Concomitant]
     Active Substance: LATANOPROST\TIMOLOL MALEATE
     Indication: Glaucoma
     Route: 047
     Dates: start: 20150611, end: 20180311
  28. ONDANSETRON [Concomitant]
     Active Substance: ONDANSETRON
     Indication: Prophylaxis
     Route: 065
     Dates: start: 20150428, end: 20150428
  29. ONDANSETRON [Concomitant]
     Active Substance: ONDANSETRON
     Indication: Prophylaxis
     Route: 065
     Dates: start: 20150519, end: 20150519
  30. ONDANSETRON [Concomitant]
     Active Substance: ONDANSETRON
     Indication: Prophylaxis
     Dosage: 4-12COURSE
     Route: 065
     Dates: start: 20160421, end: 20170207
  31. MIYA-BM [Concomitant]
     Active Substance: CLOSTRIDIUM BUTYRICUM SPORES STRAIN M-55
     Indication: Diarrhoea
     Route: 048
     Dates: start: 20150803, end: 20150913
  32. FUROSEMIDE [Concomitant]
     Active Substance: FUROSEMIDE
     Indication: Oedema peripheral
     Route: 065
     Dates: start: 20161205
  33. FUROSEMIDE [Concomitant]
     Active Substance: FUROSEMIDE
     Indication: Diarrhoea
     Dosage: UNKNOWN
     Route: 065
     Dates: start: 20170401, end: 20180215
  34. ALPHAGAN P [Concomitant]
     Active Substance: BRIMONIDINE TARTRATE
     Indication: Glaucoma
     Route: 047
     Dates: start: 20160822, end: 20210322
  35. CARTEOLOL HYDROCHLORIDE\LATANOPROST [Concomitant]
     Active Substance: CARTEOLOL HYDROCHLORIDE\LATANOPROST
     Indication: Glaucoma
     Dosage: UNKNOWN
     Route: 047
     Dates: start: 20180312, end: 20210322
  36. ALFACALCIDOL [Concomitant]
     Active Substance: ALFACALCIDOL
     Indication: Osteoporosis
     Dosage: UNKNOWN
     Route: 048
     Dates: start: 20170406, end: 20210322
  37. SODIUM FERROUS CITRATE [Concomitant]
     Active Substance: SODIUM FERROUS CITRATE
     Indication: Prophylaxis
     Dosage: UNKNOWN
     Route: 048
     Dates: start: 20180312, end: 20180617
  38. AMOXICILLIN TRIHYDRATE [Concomitant]
     Active Substance: AMOXICILLIN
     Indication: Helicobacter test positive
     Dosage: UNKNOWN
     Route: 048
     Dates: start: 20180312, end: 20180318
  39. CLARITHROMYCIN [Concomitant]
     Active Substance: CLARITHROMYCIN
     Indication: Helicobacter test positive
     Dosage: UNKNOWN
     Route: 048
     Dates: start: 20180312, end: 20180318
  40. VONOPRAZAN FUMARATE [Concomitant]
     Active Substance: VONOPRAZAN FUMARATE
     Indication: Helicobacter test positive
     Dosage: UNKNOWN
     Route: 048
     Dates: start: 20180312, end: 20180318
  41. LOXOPROFEN [Concomitant]
     Active Substance: LOXOPROFEN
     Indication: Pain management
     Dosage: UNKNOWN
     Route: 065
     Dates: start: 20180908, end: 20181105
  42. CAMPHOR\CAPSICUM\METHYL SALICYLATE [Concomitant]
     Active Substance: CAMPHOR\CAPSICUM\METHYL SALICYLATE
     Dosage: UNKNOWN
     Route: 062
     Dates: start: 20180907, end: 20181105
  43. NEXIUM [Concomitant]
     Active Substance: ESOMEPRAZOLE MAGNESIUM
     Indication: Epigastric discomfort
     Dosage: UNKNOWN
     Route: 048
     Dates: start: 20181011, end: 20210322
  44. SENNOSIDES A AND B [Concomitant]
     Active Substance: SENNOSIDES A AND B
     Dosage: DOSE UNKNOWN
     Route: 048
     Dates: start: 20190906, end: 20191001
  45. MAGNESIUM OXIDE [Concomitant]
     Active Substance: MAGNESIUM OXIDE
     Dosage: DOSE UNKNOWN
     Route: 048
     Dates: start: 20190401, end: 20210322
  46. TORSEMIDE [Concomitant]
     Active Substance: TORSEMIDE
     Dosage: DOSE UNKNOWN
     Route: 048
     Dates: start: 20190401, end: 20210322
  47. HYDROMORPHONE HYDROCHLORIDE [Concomitant]
     Active Substance: HYDROMORPHONE HYDROCHLORIDE
     Indication: Chest discomfort
     Dosage: DOSE UNKNOWN
     Route: 048
     Dates: start: 20210314, end: 20210322
  48. HYDROMORPHONE HYDROCHLORIDE [Concomitant]
     Active Substance: HYDROMORPHONE HYDROCHLORIDE
     Indication: Chest discomfort
     Dosage: DOSE UNKNOWN
     Route: 048
     Dates: start: 20210320, end: 20210322
  49. OXYGEN [Concomitant]
     Active Substance: OXYGEN
     Route: 055
     Dates: start: 20200608

REACTIONS (7)
  - Glaucoma [Recovering/Resolving]
  - Dyspnoea [Recovering/Resolving]
  - Spinal compression fracture [Recovering/Resolving]
  - Abdominal pain upper [Recovering/Resolving]
  - Diarrhoea [Recovering/Resolving]
  - Helicobacter test positive [Recovered/Resolved]
  - Epigastric discomfort [Recovering/Resolving]

NARRATIVE: CASE EVENT DATE: 20141201
